FAERS Safety Report 14137316 (Version 1)
Quarter: 2017Q4

REPORT INFORMATION
  Report Type: Report from Study
  Country: US (occurrence: US)
  Receive Date: 20171027
  Receipt Date: 20171027
  Transmission Date: 20180321
  Serious: Yes (Other)
  Sender: FDA-Public Use
  Company Number: US-ASTELLAS-2017US043883

PATIENT
  Age: 58 Year
  Sex: Male

DRUGS (2)
  1. BEVACIZUMAB. [Suspect]
     Active Substance: BEVACIZUMAB
     Indication: PAPILLARY RENAL CELL CARCINOMA
     Route: 042
     Dates: start: 20170419
  2. ERLOTINIB [Suspect]
     Active Substance: ERLOTINIB
     Indication: PAPILLARY RENAL CELL CARCINOMA
     Route: 048

REACTIONS (1)
  - Hypertension [Unknown]

NARRATIVE: CASE EVENT DATE: 20171004
